FAERS Safety Report 8590507-8 (Version None)
Quarter: 2012Q3

REPORT INFORMATION
  Report Type: 
  Country: None (occurrence: None)
  Receive Date: 20120813
  Receipt Date: 20120606
  Transmission Date: 20120928
  Serious: No
  Sender: FDA-Public Use
  Company Number: US-009507513-1208USA004280

PATIENT

DRUGS (1)
  1. COPPERTONE LOTION SPF 8 [Suspect]
     Indication: PRODUCT USED FOR UNKNOWN INDICATION
     Dosage: UNK, ONCE
     Route: 061
     Dates: start: 20120603

REACTIONS (2)
  - RASH MACULAR [None]
  - OROPHARYNGEAL PAIN [None]
